FAERS Safety Report 4695294-1 (Version None)
Quarter: 2005Q2

REPORT INFORMATION
  Report Type: 
  Country: None (occurrence: None)
  Receive Date: 20050608
  Receipt Date: 20041220
  Transmission Date: 20051028
  Serious: Yes (Other)
  Sender: FDA-Public Use
  Company Number: 390233

PATIENT

DRUGS (1)
  1. ISOTRETINOIN [Suspect]
     Dosage: 10 MG DAILY ORAL
     Route: 048
     Dates: start: 20031215, end: 20040625

REACTIONS (2)
  - NO ADVERSE EFFECT [None]
  - PREGNANCY [None]
